FAERS Safety Report 9726312 (Version 6)
Quarter: 2014Q3

REPORT INFORMATION
  Report Type: Spontaneous
  Country: US (occurrence: US)
  Receive Date: 20131203
  Receipt Date: 20140902
  Transmission Date: 20150326
  Serious: Yes (Hospitalization, Other)
  Sender: FDA-Public Use
  Company Number: US-BAYER-2013-145040

PATIENT
  Age: 20 Year
  Sex: Female
  Weight: 73 kg

DRUGS (2)
  1. MIRENA [Suspect]
     Active Substance: LEVONORGESTREL
     Indication: CONTRACEPTION
     Dosage: 20 MCG/24HR, CONT
     Route: 015
     Dates: start: 20080423, end: 20111203
  2. MIRENA [Suspect]
     Active Substance: LEVONORGESTREL
     Indication: DYSMENORRHOEA

REACTIONS (10)
  - Vaginal haemorrhage [None]
  - Medical device pain [None]
  - Vomiting [None]
  - Device dislocation [None]
  - Suprapubic pain [None]
  - Groin pain [None]
  - Urinary tract infection [None]
  - Uterine perforation [None]
  - Post procedural discomfort [None]
  - Injury [None]

NARRATIVE: CASE EVENT DATE: 2010
